FAERS Safety Report 8008100-4 (Version None)
Quarter: 2011Q4

REPORT INFORMATION
  Report Type: 
  Country: None (occurrence: None)
  Receive Date: 20111227
  Receipt Date: 20111222
  Transmission Date: 20120403
  Serious: Yes (Life-Threatening, Hospitalization, Other)
  Sender: FDA-Public Use
  Company Number: PHEH2011US010083

PATIENT
  Sex: Female
  Weight: 77.2 kg

DRUGS (30)
  1. MEDROL [Concomitant]
     Dosage: 5 DF, QD
  2. MEDROL [Concomitant]
     Dosage: 1 DF, QD
  3. BACLOFEN [Concomitant]
     Dosage: 10 MG, BID
  4. LYRICA [Concomitant]
     Indication: PAIN
     Dosage: 100 MG, QD FOR FIVE DAYS
     Route: 048
     Dates: start: 20110126
  5. INTEGRAL [Concomitant]
     Dosage: 100 MG, BID
  6. PANTOPRAZOLE [Concomitant]
     Dosage: 40 MG, QD
  7. DOLOPHINE HCL [Concomitant]
     Dosage: 10 MG, BID
     Route: 048
     Dates: start: 20110918
  8. TRAMADOL HCL [Concomitant]
     Dosage: 50 MG, Q6H, PRN
  9. ONDANSETRON [Concomitant]
     Dosage: 4 MG, Q6H,  PRN
  10. DOLOPHINE HCL [Concomitant]
     Indication: PAIN
     Dosage: 5 MG, TID
     Route: 048
     Dates: start: 20101216, end: 20110917
  11. MIRTAZAPINE [Concomitant]
     Dosage: 15 MG, QHS
  12. PREDNISONE [Concomitant]
     Dosage: 60 MG, QAM CC
  13. GILENYA [Suspect]
     Indication: RELAPSING-REMITTING MULTIPLE SCLEROSIS
     Dosage: 0.5 MG, QD
     Route: 048
     Dates: start: 20110916, end: 20111008
  14. LIORESAL [Concomitant]
     Indication: MUSCLE SPASTICITY
     Dosage: 10 MG, BID
     Route: 048
     Dates: start: 20110916
  15. CIPROFLOXACIN [Concomitant]
     Dosage: 250 MG, BID FOR THREE DAYS
     Dates: start: 20111006, end: 20111008
  16. METHADONE HCL [Concomitant]
     Dosage: 10 MG, BID
  17. MOLINDONE HCL [Concomitant]
     Dosage: 10 MG, BID
  18. MEDROL [Concomitant]
     Dosage: 4 DF, QD
  19. MEDROL [Concomitant]
     Dosage: 2 DF, QD
  20. SOLU-MEDROL [Concomitant]
     Indication: MULTIPLE SCLEROSIS RELAPSE
     Dosage: 1 G, DAILY
     Route: 042
     Dates: start: 20111005, end: 20111007
  21. THERAPEUTIC-M [Concomitant]
     Dosage: 1 DF, QD
     Route: 048
  22. LIDOCAINE [Concomitant]
     Dosage: 1 DF, QD
  23. MEDROL [Concomitant]
     Dosage: 6 DF, QD
     Dates: start: 20111008
  24. MEDROL [Concomitant]
     Dosage: 3 DF, QD
  25. TEGRETOL-XR [Concomitant]
     Dosage: 100 MG, BID
     Route: 048
     Dates: start: 20101117
  26. ACETAMINOPHEN [Concomitant]
     Dosage: 650 MG, Q6H, PRN
  27. REMERON [Concomitant]
     Indication: PAIN
     Dosage: 15 MG, DAILY
     Route: 048
     Dates: start: 20110916
  28. OXYCODONE HCL AND ACETAMINOPHEN [Concomitant]
     Indication: PAIN
     Dosage: 1 DF, EVERY 4-6 HOURS AS NEEDED
  29. SENNA-S (DOCUSATE SODIUM/SENNOSIDES) [Concomitant]
     Dosage: 2 DF, BID
  30. ENALAPRILAT [Concomitant]
     Dosage: 1.25 MG, Q6H, PRN

REACTIONS (18)
  - ELECTROCARDIOGRAM QT PROLONGED [None]
  - SOMNOLENCE [None]
  - ORTHOSTATIC HYPOTENSION [None]
  - VISUAL ACUITY TESTS ABNORMAL [None]
  - ELECTROCARDIOGRAM T WAVE ABNORMAL [None]
  - DIZZINESS POSTURAL [None]
  - PAIN [None]
  - SINUS BRADYCARDIA [None]
  - CHEST DISCOMFORT [None]
  - NAUSEA [None]
  - ELECTROCARDIOGRAM ABNORMAL [None]
  - DYSPNOEA [None]
  - CENTRAL NERVOUS SYSTEM LESION [None]
  - FATIGUE [None]
  - VISION BLURRED [None]
  - LETHARGY [None]
  - ASTHENIA [None]
  - SUPRAVENTRICULAR EXTRASYSTOLES [None]
